FAERS Safety Report 16972269 (Version 2)
Quarter: 2019Q4

REPORT INFORMATION
  Report Type: Spontaneous
  Country: DE (occurrence: DE)
  Receive Date: 20191029
  Receipt Date: 20191127
  Transmission Date: 20200122
  Serious: No
  Sender: FDA-Public Use
  Company Number: DE-BEH-2019108592

PATIENT
  Sex: Female

DRUGS (3)
  1. PREDNISOLONE. [Suspect]
     Active Substance: PREDNISOLONE
     Indication: KERATITIS INTERSTITIAL
     Route: 065
  2. PRIVIGEN [Suspect]
     Active Substance: HUMAN IMMUNOGLOBULIN G
     Dosage: 1 GRAM PER KILOGRAM, 4 WEEKLY
     Route: 042
  3. PRIVIGEN [Suspect]
     Active Substance: HUMAN IMMUNOGLOBULIN G
     Indication: COGAN^S SYNDROME
     Dosage: 2 GRAM PER KILOGRAM INITIALLY STARTING DOSE
     Route: 042
     Dates: start: 2010

REACTIONS (3)
  - No adverse event [Unknown]
  - Exposure during pregnancy [Unknown]
  - Off label use [Unknown]
